FAERS Safety Report 5078409-5 (Version None)
Quarter: 2006Q3

REPORT INFORMATION
  Report Type: 
  Country: None (occurrence: None)
  Receive Date: 20060808
  Receipt Date: 20060721
  Transmission Date: 20061208
  Serious: Yes (Death)
  Sender: FDA-Public Use
  Company Number: HU200606003489

PATIENT
  Age: 63 Year
  Sex: Male
  Weight: 91 kg

DRUGS (7)
  1. DULOXETINE HYDROCHLORIDE) (DULOXETINE HYDROCHLORIDE) CAPSULE [Suspect]
     Indication: DEPRESSION
     Dosage: 60 MG, DAILY (1/D), ORAL
     Route: 048
     Dates: start: 20060523, end: 20060528
  2. MIANSERIN ^MERCK^ (MIANSERIN HYDROCHLORIDE) [Concomitant]
  3. SUPRASTIN (CHLOROPYRAMINE HYDROCHLORIDE) [Concomitant]
  4. ALFETIM (ALFUZOSIN HYDROCHLORIDE) [Concomitant]
  5. BISOPROLOL FUMARATE [Concomitant]
  6. MONOPRIL [Concomitant]
  7. ZOLPIDEM TARTRATE [Concomitant]

REACTIONS (2)
  - COMPLETED SUICIDE [None]
  - INJURY ASPHYXIATION [None]
